FAERS Safety Report 4411528-2 (Version None)
Quarter: 2004Q2

REPORT INFORMATION
  Report Type: 
  Country: None (occurrence: None)
  Receive Date: 20040630
  Receipt Date: 20040311
  Transmission Date: 20050107
  Serious: No
  Sender: FDA-Public Use
  Company Number: 04P-163-0253314-00

PATIENT
  Age: 85 Year
  Sex: Female
  Weight: 64.4108 kg

DRUGS (5)
  1. HUMIRA [Suspect]
     Indication: RHEUMATOID ARTHRITIS
     Dosage: 40 MG, 1 IN 2 WK, SUBCUTANEOUS
     Route: 058
     Dates: start: 20031101
  2. PROPRANOLOL HYDROCHLORIDE [Concomitant]
  3. OMEPRAZOLE [Concomitant]
  4. CONJUGATED ESTROGEN [Concomitant]
  5. GLUCOSAMINE W/CHONDROITIN SULFATES [Concomitant]

REACTIONS (4)
  - DRUG INEFFECTIVE [None]
  - ERYTHEMA [None]
  - HOT FLUSH [None]
  - RASH [None]
